FAERS Safety Report 6923470-3 (Version None)
Quarter: 2010Q3

REPORT INFORMATION
  Report Type: 
  Country: None (occurrence: None)
  Receive Date: 20100813
  Receipt Date: 20100803
  Transmission Date: 20110219
  Serious: Yes (Other)
  Sender: FDA-Public Use
  Company Number: JP-PFIZER INC-2010101632

PATIENT
  Age: 28 Year
  Sex: Female

DRUGS (10)
  1. METHYLPREDNISOLONE SODIUM SUCCINATE [Suspect]
     Indication: GRAFT VERSUS HOST DISEASE
     Dosage: 2.5 MG/KG, UNK
     Route: 042
  2. MYCOPHENOLATE MOFETIL [Suspect]
     Indication: GRAFT VERSUS HOST DISEASE
     Dosage: 1000MG PER DAY
     Route: 048
  3. CYCLOSPORINE [Suspect]
     Indication: PROPHYLAXIS AGAINST GRAFT VERSUS HOST DISEASE
  4. TACROLIMUS [Concomitant]
     Indication: GRAFT VERSUS HOST DISEASE
  5. METHOTREXATE [Concomitant]
     Indication: PROPHYLAXIS AGAINST GRAFT VERSUS HOST DISEASE
  6. BUSULFAN [Concomitant]
     Indication: PREOPERATIVE CARE
  7. CYTARABINE [Concomitant]
     Indication: PREOPERATIVE CARE
  8. TRIMETHOPRIM [Concomitant]
     Indication: PROPHYLAXIS
     Dosage: 240 MG, THREE TIMES A WEEK
  9. SULFAMETHOXAZOLE [Concomitant]
     Indication: PROPHYLAXIS
     Dosage: 1200 MG, THREE TIMES A WEEK
  10. POLYGAM S/D [Concomitant]

REACTIONS (2)
  - FUNGAL INFECTION [None]
  - SEPSIS [None]
